FAERS Safety Report 5666532-3 (Version None)
Quarter: 2008Q1

REPORT INFORMATION
  Report Type: 
  Country: None (occurrence: None)
  Receive Date: 20080314
  Receipt Date: 20071211
  Transmission Date: 20080703
  Serious: No
  Sender: FDA-Public Use
  Company Number: US-ABBOTT-07P-163-0430925-00

PATIENT
  Sex: Female
  Weight: 50.8 kg

DRUGS (9)
  1. HUMIRA [Suspect]
     Indication: RHEUMATOID ARTHRITIS
     Route: 058
     Dates: start: 20050101, end: 20070118
  2. VITAMIN TAB [Concomitant]
     Indication: PREGNANCY
     Route: 048
     Dates: start: 20061108
  3. OMEGA PLUS 3-6-9 [Concomitant]
     Indication: RHEUMATOID ARTHRITIS
     Route: 048
  4. LYSINE [Concomitant]
     Indication: RHEUMATOID ARTHRITIS
     Route: 048
  5. FOLIC ACID [Concomitant]
     Indication: PREGNANCY
     Route: 048
     Dates: start: 20061108
  6. PHENOBARBITAL TAB [Concomitant]
     Indication: EPILEPSY
     Route: 048
  7. ESOMEPRAZOLE MAGNESIUM [Concomitant]
     Indication: STOMACH DISCOMFORT
     Route: 048
  8. CAFFEINE CITRATE [Concomitant]
     Indication: DRUG USE FOR UNKNOWN INDICATION
     Route: 048
     Dates: end: 20070315
  9. CAFFEINE CITRATE [Concomitant]
     Route: 048
     Dates: start: 20070315, end: 20070629

REACTIONS (11)
  - ANAEMIA [None]
  - BACK PAIN [None]
  - BRONCHITIS [None]
  - DERMATITIS CONTACT [None]
  - DYSPEPSIA [None]
  - GESTATIONAL DIABETES [None]
  - NASOPHARYNGITIS [None]
  - NAUSEA [None]
  - PYREXIA [None]
  - SINUSITIS [None]
  - URINARY TRACT INFECTION [None]
